FAERS Safety Report 25298955 (Version 2)
Quarter: 2025Q2

REPORT INFORMATION
  Report Type: Spontaneous
  Country: NL (occurrence: NL)
  Receive Date: 20250512
  Receipt Date: 20250520
  Transmission Date: 20250717
  Serious: Yes (Death, Hospitalization)
  Sender: TEVA
  Company Number: NL-TEVA-VS-3329688

PATIENT
  Age: 54 Year
  Sex: Male

DRUGS (8)
  1. METHOTREXATE [Suspect]
     Active Substance: METHOTREXATE
     Indication: Arthritis
     Route: 058
  2. AMPHOTERICIN B [Suspect]
     Active Substance: AMPHOTERICIN B
     Indication: Histoplasmosis disseminated
     Route: 065
  3. IMMUNE GLOBULIN NOS [Suspect]
     Active Substance: IMMUNE GLOBULIN NOS
     Indication: Immunomodulatory therapy
     Route: 042
  4. ADALIMUMAB [Suspect]
     Active Substance: ADALIMUMAB
     Indication: Arthritis
     Route: 058
  5. FIBRINOGEN HUMAN [Suspect]
     Active Substance: FIBRINOGEN HUMAN
     Indication: Disseminated intravascular coagulation
     Route: 065
  6. PIPERACILLIN SODIUM\TAZOBACTAM SODIUM [Concomitant]
     Active Substance: PIPERACILLIN SODIUM\TAZOBACTAM SODIUM
     Indication: Pyrexia
     Route: 065
  7. VITAMIN K [Suspect]
     Active Substance: PHYTONADIONE
     Indication: Disseminated intravascular coagulation
     Route: 065
  8. LEFLUNOMIDE [Suspect]
     Active Substance: LEFLUNOMIDE
     Indication: Arthritis
     Route: 048

REACTIONS (1)
  - Drug ineffective [Fatal]
